FAERS Safety Report 24250980 (Version 1)
Quarter: 2024Q3

REPORT INFORMATION
  Report Type: Spontaneous
  Country: US (occurrence: None)
  Receive Date: 20240825
  Receipt Date: 20240825
  Transmission Date: 20241016
  Serious: Yes (unspecified)
  Sender: Public
  Company Number: None

PATIENT
  Age: 20 Year
  Sex: Female
  Weight: 75.6 kg

DRUGS (8)
  1. ZEPBOUND [Suspect]
     Active Substance: TIRZEPATIDE
     Indication: Weight decreased
     Dosage: ONCE A WEEK SUBCUTANEOUS ?
     Route: 058
     Dates: start: 20240419, end: 20240806
  2. ZEPBOUND [Suspect]
     Active Substance: TIRZEPATIDE
     Indication: Medical procedure
  3. Glucose monitor [Concomitant]
  4. Prenatals [Concomitant]
  5. BIOTIN [Concomitant]
     Active Substance: BIOTIN
  6. VITAMIN D [Concomitant]
     Active Substance: VITAMIN D NOS
  7. OMEPRAZOLE [Concomitant]
     Active Substance: OMEPRAZOLE
  8. TYLENOL [Concomitant]
     Active Substance: ACETAMINOPHEN

REACTIONS (14)
  - Discomfort [None]
  - Back pain [None]
  - Fatigue [None]
  - Gastrointestinal disorder [None]
  - Mental disorder [None]
  - General physical health deterioration [None]
  - Panic attack [None]
  - Anxiety [None]
  - Brain fog [None]
  - Tachycardia [None]
  - Stress [None]
  - Myalgia [None]
  - Neuropathy peripheral [None]
  - Gastrointestinal disorder [None]

NARRATIVE: CASE EVENT DATE: 20240806
